FAERS Safety Report 24592548 (Version 1)
Quarter: 2024Q4

REPORT INFORMATION
  Report Type: Spontaneous
  Country: US (occurrence: US)
  Receive Date: 20241108
  Receipt Date: 20241108
  Transmission Date: 20250115
  Serious: Yes (Other)
  Sender: ASTELLAS
  Company Number: US-ASTELLAS-2024-AER-016191

PATIENT
  Age: 6 Year
  Sex: Male

DRUGS (4)
  1. TACROLIMUS [Suspect]
     Active Substance: TACROLIMUS
     Indication: Liver transplant
     Route: 065
     Dates: start: 201911
  2. PREDNISOLONE [Suspect]
     Active Substance: PREDNISOLONE
     Indication: Liver transplant
     Route: 065
     Dates: start: 201911
  3. PREDNISONE [Suspect]
     Active Substance: PREDNISONE
     Indication: Liver transplant
     Route: 065
     Dates: start: 201911
  4. MYCOPHENOLATE MOFETIL [Suspect]
     Active Substance: MYCOPHENOLATE MOFETIL
     Indication: Liver transplant
     Route: 065
     Dates: start: 201911

REACTIONS (6)
  - Eosinophilia [Unknown]
  - Disease recurrence [Unknown]
  - Epstein-Barr viraemia [Not Recovered/Not Resolved]
  - Influenza [Unknown]
  - Rhinovirus infection [Unknown]
  - Enterovirus infection [Unknown]

NARRATIVE: CASE EVENT DATE: 20200101
